FAERS Safety Report 23649669 (Version 2)
Quarter: 2024Q2

REPORT INFORMATION
  Report Type: Spontaneous
  Country: BR (occurrence: BR)
  Receive Date: 20240319
  Receipt Date: 20240510
  Transmission Date: 20240715
  Serious: Yes (Hospitalization, Other)
  Sender: FDA-Public Use
  Company Number: BR-002147023-NVSC2024BR059109

PATIENT
  Age: 24 Year
  Sex: Male

DRUGS (3)
  1. COSENTYX [Suspect]
     Active Substance: SECUKINUMAB
     Indication: Psoriasis
     Dosage: 300 MG
     Route: 065
  2. COSENTYX [Suspect]
     Active Substance: SECUKINUMAB
     Dosage: UNK, QMO (2 AMPOULE SUBCUTANEO USLY ONCE PER MONTH)
     Route: 058
     Dates: start: 20231004, end: 20240129
  3. COSENTYX [Suspect]
     Active Substance: SECUKINUMAB
     Dosage: UNK, QMO (2 AMPOULE SUBCUTANEO USLY ONCE PER MONTH)
     Route: 058
     Dates: start: 20231004, end: 20240129

REACTIONS (2)
  - Pyoderma gangrenosum [Recovering/Resolving]
  - Skin lesion [Unknown]

NARRATIVE: CASE EVENT DATE: 20240213
